FAERS Safety Report 5322138-7 (Version None)
Quarter: 2007Q2

REPORT INFORMATION
  Report Type: 
  Country: None (occurrence: None)
  Receive Date: 20070511
  Receipt Date: 20070504
  Transmission Date: 20071010
  Serious: No
  Sender: FDA-Public Use
  Company Number: BR-ELI_LILLY_AND_COMPANY-BR200705001805

PATIENT
  Age: 18 Year
  Sex: Male

DRUGS (5)
  1. CIALIS [Suspect]
     Indication: ERECTILE DYSFUNCTION
     Dosage: 20 MG, OTHER
     Route: 065
     Dates: start: 20070426
  2. ISOTREX [Concomitant]
     Dosage: 30 MG, UNKNOWN
     Route: 061
  3. VITAMIN A [Concomitant]
     Dosage: UNK, UNKNOWN
     Route: 065
  4. VITAMIN B [Concomitant]
     Dosage: UNK, UNKNOWN
     Route: 065
  5. FERROUS SULFATE TAB [Concomitant]
     Dosage: UNK, UNKNOWN
     Route: 065

REACTIONS (5)
  - BACK PAIN [None]
  - DIZZINESS [None]
  - MYALGIA [None]
  - SOMNOLENCE [None]
  - VISUAL DISTURBANCE [None]
